FAERS Safety Report 5310819-0 (Version None)
Quarter: 2007Q2

REPORT INFORMATION
  Report Type: 
  Country: None (occurrence: None)
  Receive Date: 20070428
  Receipt Date: 20070416
  Transmission Date: 20071010
  Serious: Yes (Hospitalization, Other)
  Sender: FDA-Public Use
  Company Number: US-PFIZER INC-2006153780

PATIENT
  Sex: Female

DRUGS (3)
  1. ZYVOX [Suspect]
     Indication: WOUND
     Route: 042
     Dates: start: 20061019, end: 20061029
  2. ZYVOX [Suspect]
     Route: 042
     Dates: start: 20061116, end: 20061213
  3. E-MYCIN [Suspect]

REACTIONS (6)
  - ABDOMINAL DISCOMFORT [None]
  - HAEMATOCRIT DECREASED [None]
  - HAEMOGLOBIN DECREASED [None]
  - HYPOGLYCAEMIA [None]
  - NAUSEA [None]
  - VOMITING [None]
